FAERS Safety Report 13658573 (Version 1)
Quarter: 2017Q2

REPORT INFORMATION
  Report Type: Spontaneous
  Country: US (occurrence: US)
  Receive Date: 20170615
  Receipt Date: 20170615
  Transmission Date: 20170830
  Serious: Yes (Disabling)
  Sender: FDA-Public Use
  Company Number: None

PATIENT
  Age: 49 Year
  Weight: 121.5 kg

DRUGS (16)
  1. EPIPEN [Concomitant]
     Active Substance: EPINEPHRINE
  2. VITAMIN B12 [Concomitant]
     Active Substance: CYANOCOBALAMIN
  3. L-ARGININE [Concomitant]
     Active Substance: ARGININE
  4. LORATADINE. [Concomitant]
     Active Substance: LORATADINE
  5. MAGNESIUM GLYCINATE [Concomitant]
     Active Substance: MAGNESIUM GLYCINATE
  6. CHORLTHALIDONE [Concomitant]
  7. NALTREXONE [Concomitant]
     Active Substance: NALTREXONE
  8. TESTOSTERONE CYP [Concomitant]
     Active Substance: TESTOSTERONE CYPIONATE
  9. CIPROFLOXACIN. [Suspect]
     Active Substance: CIPROFLOXACIN
     Indication: URINARY TRACT INFECTION
     Dosage: ?          QUANTITY:1 TABLET(S);?
     Route: 048
     Dates: start: 20120210, end: 20120410
  10. VALSARTAN. [Concomitant]
     Active Substance: VALSARTAN
  11. VENTOLIN HFA [Concomitant]
     Active Substance: ALBUTEROL SULFATE
  12. HYDROCORTISONE. [Concomitant]
     Active Substance: HYDROCORTISONE
  13. IODINE PLUS [Concomitant]
  14. BENADRYL [Concomitant]
     Active Substance: DIPHENHYDRAMINE HYDROCHLORIDE
  15. COLOSTRUM LD [Concomitant]
  16. COQ10 [Concomitant]
     Active Substance: UBIDECARENONE

REACTIONS (20)
  - Sensory disturbance [None]
  - Tachycardia [None]
  - Vertigo [None]
  - Neuralgia [None]
  - Paralysis [None]
  - Autoimmune disorder [None]
  - Syncope [None]
  - Respiratory disorder [None]
  - Tinnitus [None]
  - Arthralgia [None]
  - Adrenal disorder [None]
  - Endocrine disorder [None]
  - Ischaemia [None]
  - Hypertension [None]
  - Hyperhidrosis [None]
  - Angiopathy [None]
  - Neuropathy peripheral [None]
  - Temperature intolerance [None]
  - Myalgia [None]
  - Autonomic nervous system imbalance [None]

NARRATIVE: CASE EVENT DATE: 20120210
